FAERS Safety Report 6783881-6 (Version None)
Quarter: 2010Q2

REPORT INFORMATION
  Report Type: 
  Country: None (occurrence: None)
  Receive Date: 20100622
  Receipt Date: 20100615
  Transmission Date: 20101027
  Serious: Yes (Hospitalization, Other)
  Sender: FDA-Public Use
  Company Number: BR-ASTRAZENECA-2010SE28041

PATIENT
  Age: 59 Year
  Sex: Female

DRUGS (4)
  1. SELOZOK [Suspect]
     Indication: HYPERTENSION
     Dosage: OD
     Route: 048
     Dates: start: 20030101
  2. SEROQUEL [Suspect]
     Indication: FRONTOTEMPORAL DEMENTIA
     Route: 048
     Dates: start: 20050101
  3. RIVOTRIL [Concomitant]
  4. DEPAKENE [Concomitant]

REACTIONS (6)
  - CONVULSION [None]
  - DELIRIUM [None]
  - FRONTOTEMPORAL DEMENTIA [None]
  - HALLUCINATION [None]
  - MEMORY IMPAIRMENT [None]
  - OFF LABEL USE [None]
